FAERS Safety Report 8979596 (Version 2)
Quarter: 2014Q3

REPORT INFORMATION
  Report Type: Spontaneous
  Country: CN (occurrence: CN)
  Receive Date: 20121221
  Receipt Date: 20140819
  Transmission Date: 20150326
  Serious: Yes (Death, Other)
  Sender: FDA-Public Use
  Company Number: CN-PFIZER INC-2012324810

PATIENT
  Age: 81 Year
  Sex: Female
  Weight: 52 kg

DRUGS (1)
  1. MS CONTIN [Suspect]
     Active Substance: MORPHINE SULFATE
     Indication: CANCER PAIN
     Dosage: 30 MG, DAILY
     Route: 048
     Dates: start: 20121202, end: 20121204

REACTIONS (3)
  - Coma [Fatal]
  - Somnolence [Unknown]
  - Dyspnoea [Fatal]

NARRATIVE: CASE EVENT DATE: 201212
